FAERS Safety Report 4508303-7 (Version None)
Quarter: 2004Q4

REPORT INFORMATION
  Report Type: 
  Country: None (occurrence: None)
  Receive Date: 20041123
  Receipt Date: 20031222
  Transmission Date: 20050328
  Serious: No
  Sender: FDA-Public Use
  Company Number: US-GLAXOSMITHKLINE-A0444161A

PATIENT
  Age: 37 Year
  Sex: Male
  Weight: 68.2 kg

DRUGS (24)
  1. WELLBUTRIN [Suspect]
     Indication: ILL-DEFINED DISORDER
     Dosage: 100MG TWICE PER DAY
     Route: 048
  2. KALETRA [Suspect]
     Dosage: 500MG PER DAY
  3. VIREAD [Concomitant]
     Dosage: 300MG PER DAY
  4. COMBIVIR [Concomitant]
     Dosage: 450MG PER DAY
  5. OXANDRIN [Concomitant]
     Dosage: 10MG TWICE PER DAY
  6. FOSINOPRIL SODIUM [Concomitant]
     Dosage: 10MG PER DAY
  7. FUROSEMIDE [Concomitant]
  8. METOPROLOL [Concomitant]
     Dosage: 25MG PER DAY
  9. TRAZODONE HCL [Concomitant]
     Dosage: 100MG PER DAY
  10. ZYPREXA [Concomitant]
     Dosage: 20MG PER DAY
  11. PAXIL [Concomitant]
     Dosage: 20MG PER DAY
  12. COMBIVENT [Concomitant]
     Dosage: 2PUFF FOUR TIMES PER DAY
  13. FLOVENT [Concomitant]
     Dosage: 2PUFF TWICE PER DAY
  14. VIAGRA [Concomitant]
     Dosage: 100MG AS REQUIRED
  15. LOMOTIL [Concomitant]
  16. CREON [Concomitant]
  17. MULTI-VITAMIN [Concomitant]
  18. N-ACETYL-L-CYSTEINE [Concomitant]
     Dosage: 600MG PER DAY
  19. ALPHA LIPOIC ACID [Concomitant]
     Dosage: 250MG PER DAY
  20. COENZYME Q10 [Concomitant]
     Dosage: 150MG PER DAY
  21. MILK THISTLE [Concomitant]
     Dosage: 400MG PER DAY
  22. CARNITOR [Concomitant]
     Dosage: 1G PER DAY
  23. FIBER [Concomitant]
     Dosage: 1TAB PER DAY
  24. OMEGA 3 [Concomitant]

REACTIONS (5)
  - ANXIETY [None]
  - DRUG INTERACTION [None]
  - INSOMNIA [None]
  - IRRITABILITY [None]
  - MANIA [None]
